FAERS Safety Report 6528392-8 (Version None)
Quarter: 2010Q1

REPORT INFORMATION
  Report Type: 
  Country: None (occurrence: None)
  Receive Date: 20100106
  Receipt Date: 20100104
  Transmission Date: 20100710
  Serious: Yes (Disabling, Other)
  Sender: FDA-Public Use
  Company Number: A0811598A

PATIENT
  Age: 61 Year
  Sex: Female
  Weight: 70.5 kg

DRUGS (3)
  1. LAMICTAL XR [Suspect]
     Dosage: 100MG PER DAY
     Route: 048
     Dates: start: 20090101, end: 20090101
  2. KEPPRA XR [Concomitant]
  3. VIMPAT [Concomitant]

REACTIONS (5)
  - INFLUENZA LIKE ILLNESS [None]
  - PRURITUS [None]
  - RASH [None]
  - RASH ERYTHEMATOUS [None]
  - SUICIDAL IDEATION [None]
